FAERS Safety Report 6058046-6 (Version None)
Quarter: 2009Q1

REPORT INFORMATION
  Report Type: 
  Country: None (occurrence: None)
  Receive Date: 20090127
  Receipt Date: 20090122
  Transmission Date: 20090719
  Serious: Yes (Death, Life-Threatening, Hospitalization)
  Sender: FDA-Public Use
  Company Number: US025192

PATIENT
  Age: 57 Year
  Sex: Male
  Weight: 81.1939 kg

DRUGS (3)
  1. TREANDA [Suspect]
     Indication: CHRONIC LYMPHOCYTIC LEUKAEMIA
     Dosage: 200 MG QD INTRAVENOUS
     Route: 042
     Dates: start: 20081006, end: 20081007
  2. ALLOPURINOL [Suspect]
     Indication: PROPHYLAXIS
     Dosage: 100 MG QD, 200MG, QD
     Route: 042
     Dates: start: 20080925, end: 20081008
  3. ALLOPURINOL [Suspect]
     Indication: TUMOUR LYSIS SYNDROME
     Dosage: 100 MG QD, 200MG, QD
     Route: 042
     Dates: start: 20080925, end: 20081008

REACTIONS (30)
  - ATELECTASIS [None]
  - BILIRUBIN CONJUGATED INCREASED [None]
  - BLISTER [None]
  - BLOOD CHLORIDE INCREASED [None]
  - BLOOD GLUCOSE INCREASED [None]
  - BLOOD PRESSURE INCREASED [None]
  - BLOOD SODIUM INCREASED [None]
  - BLOOD UREA INCREASED [None]
  - CHOLELITHIASIS [None]
  - COLITIS [None]
  - EYE IRRITATION [None]
  - HEART RATE INCREASED [None]
  - HEPATIC ENZYME INCREASED [None]
  - HYPOALBUMINAEMIA [None]
  - HYPOTENSION [None]
  - MUCOSAL INFLAMMATION [None]
  - MUCOSAL ULCERATION [None]
  - OROPHARYNGEAL BLISTERING [None]
  - PCO2 INCREASED [None]
  - PENIS DISORDER [None]
  - PROTEIN TOTAL DECREASED [None]
  - RASH MACULO-PAPULAR [None]
  - RENAL FAILURE [None]
  - SKIN EXFOLIATION [None]
  - SPLENOMEGALY [None]
  - STAPHYLOCOCCAL BACTERAEMIA [None]
  - STAPHYLOCOCCAL INFECTION [None]
  - TACHYCARDIA [None]
  - URINARY TRACT INFECTION PSEUDOMONAL [None]
  - WEIGHT DECREASED [None]
